FAERS Safety Report 5009586-X (Version None)
Quarter: 2006Q2

REPORT INFORMATION
  Report Type: 
  Country: None (occurrence: None)
  Receive Date: 20060524
  Receipt Date: 20060503
  Transmission Date: 20061013
  Serious: Yes (Other)
  Sender: FDA-Public Use
  Company Number: PHEH2006US05835

PATIENT
  Age: 11 Year
  Sex: Male
  Weight: 30.385 kg

DRUGS (1)
  1. FOCALIN XR [Suspect]
     Indication: ATTENTION DEFICIT/HYPERACTIVITY DISORDER
     Dosage: 20 MG, QD IN A.M.
     Route: 048
     Dates: start: 20060408, end: 20060414

REACTIONS (4)
  - AGITATION [None]
  - CONVERSION DISORDER [None]
  - PSYCHOTIC DISORDER [None]
  - SUICIDAL IDEATION [None]
